FAERS Safety Report 6349311-3 (Version None)
Quarter: 2009Q3

REPORT INFORMATION
  Report Type: 
  Country: None (occurrence: None)
  Receive Date: 20090911
  Receipt Date: 20090908
  Transmission Date: 20100115
  Serious: Yes (Hospitalization)
  Sender: FDA-Public Use
  Company Number: B0590704A

PATIENT
  Sex: Male

DRUGS (14)
  1. ZOPHREN [Suspect]
     Indication: VOMITING
     Dosage: 8MG TWICE PER DAY
     Route: 042
     Dates: start: 20081114, end: 20081114
  2. NAVELBINE [Suspect]
     Dosage: 60MG CYCLIC
     Route: 042
     Dates: start: 20081114, end: 20081114
  3. CISPLATIN [Suspect]
     Dosage: 120MG CYCLIC
     Route: 042
     Dates: start: 20081114, end: 20081114
  4. EMEND [Suspect]
     Indication: VOMITING
     Route: 048
     Dates: start: 20081114, end: 20081116
  5. SOLU-MEDROL [Suspect]
     Dosage: 120MG PER DAY
     Route: 042
     Dates: start: 20081114, end: 20081114
  6. STAGID [Concomitant]
     Dosage: 700MG TWICE PER DAY
     Route: 065
  7. JANUVIA [Concomitant]
     Dosage: 100MG PER DAY
     Route: 065
  8. XANAX [Concomitant]
     Route: 048
     Dates: start: 20081003, end: 20081113
  9. MONOTILDIEM LP [Concomitant]
     Dosage: 300MG PER DAY
  10. HYTACAND [Concomitant]
     Dosage: 6MG PER DAY
  11. EZETROL [Concomitant]
     Dosage: 10MG PER DAY
  12. TAHOR [Concomitant]
     Dosage: 40MG PER DAY
  13. KARDEGIC [Concomitant]
     Dosage: 160MG PER DAY
  14. GRANOCYTE [Concomitant]
     Indication: NEUTROPENIA
     Route: 065
     Dates: start: 20081031, end: 20081105

REACTIONS (9)
  - BRADYCARDIA [None]
  - CHEST PAIN [None]
  - CIRCULATORY COLLAPSE [None]
  - DIABETES MELLITUS INADEQUATE CONTROL [None]
  - HYPERKALAEMIA [None]
  - ILEUS PARALYTIC [None]
  - METABOLIC DISORDER [None]
  - PANCREATITIS NECROTISING [None]
  - RENAL FAILURE ACUTE [None]
